FAERS Safety Report 8066032-X (Version None)
Quarter: 2012Q1

REPORT INFORMATION
  Report Type: 
  Country: None (occurrence: None)
  Receive Date: 20120124
  Receipt Date: 20120119
  Transmission Date: 20120608
  Serious: Yes (Death, Hospitalization)
  Sender: FDA-Public Use
  Company Number: NL-B.I. PHARMACEUTICALS,INC./RIDGEFIELD-2012-NL-00032NL

PATIENT
  Sex: Female

DRUGS (2)
  1. ANTI-COAGULANTS [Concomitant]
  2. SPIRIVA [Suspect]

REACTIONS (2)
  - ABDOMINAL DISTENSION [None]
  - CHEST DISCOMFORT [None]
